FAERS Safety Report 20133689 (Version 2)
Quarter: 2022Q1

REPORT INFORMATION
  Report Type: Report from Study
  Country: US (occurrence: US)
  Receive Date: 20211201
  Receipt Date: 20220203
  Transmission Date: 20220423
  Serious: Yes (Hospitalization)
  Sender: FDA-Public Use
  Company Number: US-BIOGEN-2021BI01070465

PATIENT
  Age: 67 Year
  Sex: Female

DRUGS (1)
  1. TYSABRI [Suspect]
     Active Substance: NATALIZUMAB
     Indication: Multiple sclerosis
     Route: 065
     Dates: start: 20210712

REACTIONS (5)
  - Sepsis [Unknown]
  - Pneumothorax [Unknown]
  - General physical health deterioration [Unknown]
  - Gait inability [Unknown]
  - Pneumonia [Unknown]

NARRATIVE: CASE EVENT DATE: 20210901
